FAERS Safety Report 16206194 (Version 2)
Quarter: 2019Q2

REPORT INFORMATION
  Report Type: Spontaneous
  Country: TR (occurrence: TR)
  Receive Date: 20190417
  Receipt Date: 20190418
  Transmission Date: 20190711
  Serious: Yes (Other)
  Sender: FDA-Public Use
  Company Number: TR-TEVA-2019-TR-1008662

PATIENT
  Sex: Male

DRUGS (1)
  1. TETRADOX [DOXYCYCLINE] [Suspect]
     Active Substance: DOXYCYCLINE
     Indication: GINGIVITIS
     Route: 048

REACTIONS (2)
  - Chest pain [Recovered/Resolved]
  - Pain [Recovered/Resolved]
